FAERS Safety Report 5091275-7 (Version None)
Quarter: 2006Q3

REPORT INFORMATION
  Report Type: 
  Country: None (occurrence: None)
  Receive Date: 20060829
  Receipt Date: 20060821
  Transmission Date: 20061208
  Serious: Yes (Hospitalization)
  Sender: FDA-Public Use
  Company Number: FR-AVENTIS-200612923FR

PATIENT
  Age: 55 Year
  Sex: Male
  Weight: 68 kg

DRUGS (10)
  1. LOVENOX [Suspect]
     Indication: EMBOLISM VENOUS
     Route: 058
     Dates: start: 20060717
  2. LOVENOX [Suspect]
     Indication: VENOUS THROMBOSIS
     Route: 058
     Dates: start: 20060717
  3. MOPRAL [Suspect]
     Indication: GASTROINTESTINAL HAEMORRHAGE
     Dates: start: 20060717, end: 20060720
  4. DEROXAT [Suspect]
     Indication: DEPRESSION
     Route: 048
     Dates: start: 20060717
  5. CARDENSIEL [Suspect]
     Indication: CARDIAC FAILURE
     Route: 048
     Dates: end: 20060705
  6. DIGOXIN [Suspect]
     Indication: CARDIAC FAILURE
     Route: 048
     Dates: end: 20060705
  7. EFFEXOR [Suspect]
     Indication: DEPRESSION
     Route: 048
     Dates: end: 20060705
  8. CO-DAFALGAN [Concomitant]
     Dates: start: 20060717
  9. XANAX [Concomitant]
     Dates: start: 20060717
  10. IMOVANE [Concomitant]
     Dates: start: 20060717

REACTIONS (2)
  - ANAEMIA [None]
  - THROMBOCYTOPENIA [None]
